FAERS Safety Report 16745305 (Version 1)
Quarter: 2019Q3

REPORT INFORMATION
  Report Type: Spontaneous
  Country: GB (occurrence: GB)
  Receive Date: 20190827
  Receipt Date: 20190827
  Transmission Date: 20191005
  Serious: Yes (Other)
  Sender: FDA-Public Use
  Company Number: GB-MYLANLABS-2019M1080312

PATIENT
  Age: 7 Decade
  Sex: Female

DRUGS (3)
  1. MYCOPHENOLATE MOFETIL. [Suspect]
     Active Substance: MYCOPHENOLATE MOFETIL
     Indication: GRAFT VERSUS HOST DISEASE
     Route: 065
  2. NICOTINAMIDE [Suspect]
     Active Substance: NIACINAMIDE
     Indication: GRAFT VERSUS HOST DISEASE
     Route: 065
  3. LYMECYCLINE [Suspect]
     Active Substance: LYMECYCLINE
     Indication: GRAFT VERSUS HOST DISEASE
     Route: 048

REACTIONS (1)
  - Drug ineffective [Unknown]
